FAERS Safety Report 23243086 (Version 1)
Quarter: 2023Q4

REPORT INFORMATION
  Report Type: Spontaneous
  Country: US (occurrence: US)
  Receive Date: 20231130
  Receipt Date: 20231130
  Transmission Date: 20240110
  Serious: Yes (Other)
  Sender: FDA-Public Use
  Company Number: US-STRIDES ARCOLAB LIMITED-2023SP014997

PATIENT
  Age: 46 Year
  Sex: Male

DRUGS (16)
  1. DOXORUBICIN [Suspect]
     Active Substance: DOXORUBICIN
     Indication: Diffuse large B-cell lymphoma stage II
     Dosage: UNK, CYCLICAL RECEIVED 1 CYCLE OF CHOP
     Route: 065
  2. DOXORUBICIN [Suspect]
     Active Substance: DOXORUBICIN
     Indication: Anaplastic lymphoma kinase gene mutation
  3. PREDNISOLONE [Suspect]
     Active Substance: PREDNISOLONE
     Indication: Diffuse large B-cell lymphoma stage II
     Dosage: UNK, CYCLICAL, RECEIVED 1 CYCLE OF CHOP
     Route: 065
  4. PREDNISOLONE [Suspect]
     Active Substance: PREDNISOLONE
     Indication: Anaplastic lymphoma kinase gene mutation
  5. DEXAMETHASONE [Suspect]
     Active Substance: DEXAMETHASONE
     Indication: Diffuse large B-cell lymphoma stage II
     Dosage: 40 MILLIGRAM PER DAY
     Route: 065
  6. DEXAMETHASONE [Suspect]
     Active Substance: DEXAMETHASONE
     Indication: Anaplastic lymphoma kinase gene mutation
  7. CYCLOPHOSPHAMIDE [Suspect]
     Active Substance: CYCLOPHOSPHAMIDE
     Indication: Diffuse large B-cell lymphoma stage II
     Dosage: UNK, CYCLICAL, RECEIVED 1 CYCLE OF CHOP
     Route: 065
  8. CYCLOPHOSPHAMIDE [Suspect]
     Active Substance: CYCLOPHOSPHAMIDE
     Indication: Anaplastic lymphoma kinase gene mutation
  9. VINCRISTINE [Suspect]
     Active Substance: VINCRISTINE
     Indication: Diffuse large B-cell lymphoma stage II
     Dosage: UNK, CYCLICAL, RECEIVED 1 CYCLE OF CHOP
     Route: 065
  10. VINCRISTINE [Suspect]
     Active Substance: VINCRISTINE
     Indication: Anaplastic lymphoma kinase gene mutation
  11. CRIZOTINIB [Suspect]
     Active Substance: CRIZOTINIB
     Indication: Diffuse large B-cell lymphoma stage II
     Dosage: 250 MILLIGRAM, BID
     Route: 048
  12. CRIZOTINIB [Suspect]
     Active Substance: CRIZOTINIB
     Indication: Anaplastic lymphoma kinase gene mutation
  13. ALECTINIB [Suspect]
     Active Substance: ALECTINIB
     Indication: Diffuse large B-cell lymphoma stage II
     Dosage: UNK
     Route: 065
  14. ALECTINIB [Suspect]
     Active Substance: ALECTINIB
     Indication: Anaplastic lymphoma kinase gene mutation
  15. LORLATINIB [Suspect]
     Active Substance: LORLATINIB
     Indication: Diffuse large B-cell lymphoma stage II
     Dosage: UNK
     Route: 065
  16. LORLATINIB [Suspect]
     Active Substance: LORLATINIB
     Indication: Anaplastic lymphoma kinase gene mutation

REACTIONS (4)
  - COVID-19 [Unknown]
  - Malignant neoplasm progression [Unknown]
  - Drug ineffective [Unknown]
  - Therapy non-responder [Unknown]
